FAERS Safety Report 5104872-7 (Version None)
Quarter: 2006Q3

REPORT INFORMATION
  Report Type: 
  Country: None (occurrence: None)
  Receive Date: 20060914
  Receipt Date: 20060810
  Transmission Date: 20061208
  Serious: Yes (Other)
  Sender: FDA-Public Use
  Company Number: DE-GLAXOSMITHKLINE-D0050618A

PATIENT

DRUGS (1)
  1. ZINNAT [Suspect]
     Route: 065

REACTIONS (1)
  - ENTEROCOLITIS [None]
